FAERS Safety Report 19083710 (Version 1)
Quarter: 2021Q2

REPORT INFORMATION
  Report Type: Spontaneous
  Country: US (occurrence: US)
  Receive Date: 20210401
  Receipt Date: 20210401
  Transmission Date: 20210717
  Serious: No
  Sender: FDA-Public Use
  Company Number: US-MERZ PHARMACEUTICALS GMBH-21-01173

PATIENT
  Age: 41 Year
  Sex: Female

DRUGS (1)
  1. XEOMIN [Suspect]
     Active Substance: INCOBOTULINUMTOXINA
     Indication: SKIN COSMETIC PROCEDURE
     Dates: start: 20210316, end: 20210316

REACTIONS (3)
  - Headache [Unknown]
  - Off label use [Unknown]
  - Muscle twitching [Unknown]

NARRATIVE: CASE EVENT DATE: 202103
